FAERS Safety Report 7960930-0 (Version None)
Quarter: 2011Q4

REPORT INFORMATION
  Report Type: 
  Country: None (occurrence: None)
  Receive Date: 20111201
  Receipt Date: 20111201
  Transmission Date: 20120403
  Serious: Yes (Disabling)
  Sender: FDA-Public Use
  Company Number: None

PATIENT
  Age: 24 Year
  Sex: Male
  Weight: 99.7913 kg

DRUGS (1)
  1. FINASTERIDE [Suspect]
     Indication: ALOPECIA
     Dosage: 1.25 MG / DAY DAILY ORAL
     Route: 048
     Dates: start: 20101101, end: 20110301

REACTIONS (3)
  - MENTAL DISORDER [None]
  - GENERAL PHYSICAL CONDITION ABNORMAL [None]
  - SEXUAL DYSFUNCTION [None]
